FAERS Safety Report 7628298-7 (Version None)
Quarter: 2011Q3

REPORT INFORMATION
  Report Type: 
  Country: None (occurrence: None)
  Receive Date: 20110720
  Receipt Date: 20110720
  Transmission Date: 20111222
  Serious: Yes (Other)
  Sender: FDA-Public Use
  Company Number: None

PATIENT
  Age: 56 Year
  Sex: Female

DRUGS (1)
  1. BRIMONIDINE 0.2% (GENERIC) [Suspect]
     Indication: GLAUCOMA
     Dosage: 3X/DAY

REACTIONS (2)
  - PRODUCT SUBSTITUTION ISSUE [None]
  - INTRAOCULAR PRESSURE INCREASED [None]
